FAERS Safety Report 17601844 (Version 1)
Quarter: 2020Q1

REPORT INFORMATION
  Report Type: Spontaneous
  Country: US (occurrence: US)
  Receive Date: 20200330
  Receipt Date: 20200330
  Transmission Date: 20200409
  Serious: Yes (Hospitalization)
  Sender: FDA-Public Use
  Company Number: US-JNJFOC-20200334041

PATIENT
  Sex: Female

DRUGS (6)
  1. RIVAROXABAN [Suspect]
     Active Substance: RIVAROXABAN
     Indication: PRODUCT USED FOR UNKNOWN INDICATION
     Route: 048
  2. CORICIDIN [OXYMETAZOLINE HYDROCHLORIDE] [Suspect]
     Active Substance: OXYMETAZOLINE HYDROCHLORIDE
  3. ELIQUIS [Suspect]
     Active Substance: APIXABAN
  4. LISINOPRIL. [Concomitant]
     Active Substance: LISINOPRIL
  5. VERAPAMIL [Concomitant]
     Active Substance: VERAPAMIL HYDROCHLORIDE
  6. ASPRIN [Suspect]
     Active Substance: ASPIRIN
     Route: 065

REACTIONS (6)
  - Product use issue [Unknown]
  - Product use in unapproved indication [Unknown]
  - Malaise [Unknown]
  - Off label use [Unknown]
  - Hypertension [Unknown]
  - Diarrhoea [Unknown]
